FAERS Safety Report 6218166-X (Version None)
Quarter: 2009Q2

REPORT INFORMATION
  Report Type: 
  Country: None (occurrence: None)
  Receive Date: 20090608
  Receipt Date: 20090604
  Transmission Date: 20091009
  Serious: Yes (Hospitalization, Other)
  Sender: FDA-Public Use
  Company Number: FR-RB-005155-08

PATIENT
  Age: 23 Year
  Sex: Male

DRUGS (1)
  1. SUBUTEX [Suspect]
     Route: 060

REACTIONS (3)
  - CONSTIPATION [None]
  - GASTROINTESTINAL OBSTRUCTION [None]
  - URINARY TRACT DISORDER [None]
